FAERS Safety Report 7095159-4 (Version None)
Quarter: 2010Q4

REPORT INFORMATION
  Report Type: 
  Country: None (occurrence: None)
  Receive Date: 20101109
  Receipt Date: 20101109
  Transmission Date: 20110411
  Serious: Yes (Other)
  Sender: FDA-Public Use
  Company Number: None

PATIENT
  Age: 57 Year
  Sex: Male

DRUGS (3)
  1. SULFAMETHOXAZOLE AND TRIMETHOPRIM [Suspect]
     Dates: start: 20101022, end: 20101101
  2. FENOFIBRATE [Concomitant]
  3. LOVASTATIN [Concomitant]

REACTIONS (4)
  - CHILLS [None]
  - CHROMATURIA [None]
  - PAIN [None]
  - PYREXIA [None]
